FAERS Safety Report 18969210 (Version 2)
Quarter: 2021Q1

REPORT INFORMATION
  Report Type: Spontaneous
  Country: US (occurrence: US)
  Receive Date: 20210304
  Receipt Date: 20210331
  Transmission Date: 20210420
  Serious: Yes (Hospitalization)
  Sender: FDA-Public Use
  Company Number: US-JNJFOC-20210302025

PATIENT
  Age: 81 Year
  Sex: Female

DRUGS (16)
  1. VASCEPA [Concomitant]
     Active Substance: ICOSAPENT ETHYL
  2. CENTRUM [MINERALS NOS;VITAMINS NOS] [Concomitant]
     Active Substance: MINERALS\VITAMINS
  3. LEVOTHYROXINE. [Concomitant]
     Active Substance: LEVOTHYROXINE
  4. ATORVASTATIN [Concomitant]
     Active Substance: ATORVASTATIN
  5. CLARITIN [Concomitant]
     Active Substance: LORATADINE
  6. FAMOTIDINE. [Concomitant]
     Active Substance: FAMOTIDINE
  7. BENEFIBER [Concomitant]
     Active Substance: STARCH, WHEAT
  8. TELMISARTAN. [Concomitant]
     Active Substance: TELMISARTAN
  9. GLIPIZIDE. [Concomitant]
     Active Substance: GLIPIZIDE
  10. ALLOPURINOL. [Concomitant]
     Active Substance: ALLOPURINOL
  11. METOPROLOL. [Concomitant]
     Active Substance: METOPROLOL
  12. XARELTO [Suspect]
     Active Substance: RIVAROXABAN
     Indication: CEREBROVASCULAR ACCIDENT PROPHYLAXIS
  13. OSTEO BI?FLEX [CHONDROITIN SULFATE;GLUCOSAMINE HYDROCHLORIDE] [Concomitant]
  14. FLUTICASONE. [Concomitant]
     Active Substance: FLUTICASONE
  15. XARELTO [Suspect]
     Active Substance: RIVAROXABAN
     Indication: ATRIAL FIBRILLATION
     Route: 048
  16. VITAMIN D3 [Concomitant]
     Active Substance: CHOLECALCIFEROL

REACTIONS (4)
  - Atrial fibrillation [Unknown]
  - Lip ulceration [Unknown]
  - Lip swelling [Recovering/Resolving]
  - Gingival swelling [Recovering/Resolving]

NARRATIVE: CASE EVENT DATE: 2020
